FAERS Safety Report 6644385-4 (Version None)
Quarter: 2010Q1

REPORT INFORMATION
  Report Type: 
  Country: None (occurrence: None)
  Receive Date: 20100304
  Receipt Date: 20090316
  Transmission Date: 20100710
  Serious: Yes (Other)
  Sender: FDA-Public Use
  Company Number: US-002630

PATIENT
  Age: 78 Year
  Sex: Male

DRUGS (11)
  1. ISOVUE-300 [Suspect]
     Indication: AORTIC DISSECTION
     Dosage: 90ML QD INTRAVENOUS
     Route: 042
     Dates: start: 20090316, end: 20090316
  2. ISOVUE-300 [Suspect]
     Indication: CHEST PAIN
     Dosage: 90ML QD INTRAVENOUS
     Route: 042
     Dates: start: 20090316, end: 20090316
  3. ISOVUE-300 [Suspect]
     Indication: COMPUTERISED TOMOGRAM
     Dosage: 90ML QD INTRAVENOUS
     Route: 042
     Dates: start: 20090316, end: 20090316
  4. COLACE (DOCUSATE SODIUM) [Concomitant]
  5. METOPROLOL (METOPROLOL) [Concomitant]
  6. PRILOSEC [Concomitant]
  7. ASPIRIN [Concomitant]
  8. SPIRIVA INHALER (TIOTROPIUM BROMIDE) [Concomitant]
  9. CITALOPRAM HYDROBROMIDE [Concomitant]
  10. LISINOPRIL [Concomitant]
  11. SIMVASTATIN [Concomitant]

REACTIONS (3)
  - EXTRAVASATION [None]
  - INJECTION SITE ERYTHEMA [None]
  - INJECTION SITE SWELLING [None]
